FAERS Safety Report 6289601-6 (Version None)
Quarter: 2009Q3

REPORT INFORMATION
  Report Type: 
  Country: None (occurrence: None)
  Receive Date: 20090729
  Receipt Date: 20090729
  Transmission Date: 20100115
  Serious: Yes (Other)
  Sender: FDA-Public Use
  Company Number: None

PATIENT
  Sex: Female
  Weight: 109.3169 kg

DRUGS (6)
  1. LEFLUNOMIDE [Suspect]
     Indication: RHEUMATOID ARTHRITIS
     Dosage: 20 MG DAILY PO GENERIC LEFLUNOMIDE FEW MONTHS
     Route: 048
  2. FENTANYL [Concomitant]
  3. SINGULAIR [Concomitant]
  4. FUROSEMIDE [Concomitant]
  5. THYROID TAB [Concomitant]
  6. POPOXYPHENE [Concomitant]

REACTIONS (2)
  - PRODUCT SUBSTITUTION ISSUE [None]
  - PRURITUS [None]
